FAERS Safety Report 4827112-2 (Version None)
Quarter: 2005Q4

REPORT INFORMATION
  Report Type: 
  Country: None (occurrence: None)
  Receive Date: 20051114
  Receipt Date: 20051107
  Transmission Date: 20060501
  Serious: Yes (Hospitalization)
  Sender: FDA-Public Use
  Company Number: GB-GLAXOSMITHKLINE-B0400049A

PATIENT
  Sex: Female

DRUGS (2)
  1. PAROXETINE HCL [Suspect]
     Dosage: 30MG PER DAY
  2. CHLORPROMAZINE [Suspect]
     Dosage: 50MG TWICE PER DAY

REACTIONS (15)
  - CONVULSION [None]
  - DECREASED APPETITE [None]
  - DRUG EXPOSURE DURING PREGNANCY [None]
  - DYSKINESIA [None]
  - FEELING JITTERY [None]
  - HYPERREFLEXIA [None]
  - HYPERTONIA [None]
  - INTERCOSTAL RETRACTION [None]
  - OPISTHOTONUS [None]
  - POLYCYTHAEMIA [None]
  - PYREXIA [None]
  - RESPIRATORY DISTRESS [None]
  - SEROTONIN SYNDROME [None]
  - TACHYPNOEA [None]
  - TREMOR [None]
